FAERS Safety Report 25817899 (Version 1)
Quarter: 2025Q3

REPORT INFORMATION
  Report Type: Spontaneous
  Country: GB (occurrence: GB)
  Receive Date: 20250918
  Receipt Date: 20250918
  Transmission Date: 20251021
  Serious: Yes (Disabling, Other)
  Sender: ELI LILLY AND COMPANY
  Company Number: None

PATIENT
  Age: 49 Year
  Sex: Female
  Weight: 76 kg

DRUGS (5)
  1. MOUNJARO [Suspect]
     Active Substance: TIRZEPATIDE
     Indication: Weight control
     Route: 065
     Dates: start: 20250425
  2. MOUNJARO [Suspect]
     Active Substance: TIRZEPATIDE
     Dosage: 7.5 MG, WEEKLY (1/W)
     Route: 065
  3. OESTROGEL [ESTRADIOL] [Concomitant]
     Indication: Menopausal symptoms
     Dates: start: 2022
  4. UTROGESTAN [Concomitant]
     Active Substance: PROGESTERONE
     Indication: Menopause
  5. DESOGESTREL [Concomitant]
     Active Substance: DESOGESTREL
     Indication: Contraception

REACTIONS (4)
  - Anxiety [Not Recovered/Not Resolved]
  - Panic reaction [Not Recovered/Not Resolved]
  - Insomnia [Not Recovered/Not Resolved]
  - Alopecia [Not Recovered/Not Resolved]

NARRATIVE: CASE EVENT DATE: 20250724
